FAERS Safety Report 4561221-0 (Version None)
Quarter: 2005Q1

REPORT INFORMATION
  Report Type: 
  Country: None (occurrence: None)
  Receive Date: 20050126
  Receipt Date: 20050120
  Transmission Date: 20050727
  Serious: Yes (Other)
  Sender: FDA-Public Use
  Company Number: PHBS2005BR01240

PATIENT
  Age: 15 Year
  Sex: Male
  Weight: 40 kg

DRUGS (1)
  1. RITALINA [Suspect]
     Indication: DYSLEXIA
     Dosage: 3 DF/DAY
     Route: 048
     Dates: start: 20040701

REACTIONS (3)
  - BODY HEIGHT INCREASED [None]
  - INCREASED APPETITE [None]
  - WEIGHT INCREASED [None]
